FAERS Safety Report 18959019 (Version 3)
Quarter: 2021Q2

REPORT INFORMATION
  Report Type: Spontaneous
  Country: JP (occurrence: JP)
  Receive Date: 20210302
  Receipt Date: 20210416
  Transmission Date: 20210717
  Serious: No
  Sender: FDA-Public Use
  Company Number: JP-ABBVIE-21K-087-3763591-00

PATIENT
  Age: 60 Year
  Sex: Female

DRUGS (2)
  1. SKYRIZI [Suspect]
     Active Substance: RISANKIZUMAB-RZAA
     Indication: PSORIASIS
     Route: 058
     Dates: start: 20201211
  2. PREDNISOLONE. [Concomitant]
     Active Substance: PREDNISOLONE
     Indication: PRODUCT USED FOR UNKNOWN INDICATION
     Route: 048
     Dates: start: 20210205

REACTIONS (6)
  - Oedema peripheral [Recovering/Resolving]
  - Osteoarthritis [Unknown]
  - Scleroderma [Recovering/Resolving]
  - Back pain [Unknown]
  - Spinal stenosis [Unknown]
  - Gait disturbance [Recovering/Resolving]

NARRATIVE: CASE EVENT DATE: 20201211
